FAERS Safety Report 6080186-6 (Version None)
Quarter: 2009Q1

REPORT INFORMATION
  Report Type: 
  Country: None (occurrence: None)
  Receive Date: 20090217
  Receipt Date: 20090210
  Transmission Date: 20090719
  Serious: Yes (Hospitalization)
  Sender: FDA-Public Use
  Company Number: US-ELI_LILLY_AND_COMPANY-US200902002133

PATIENT
  Sex: Female

DRUGS (3)
  1. HUMALOG MIX 75/25 [Suspect]
  2. HUMALOG [Suspect]
  3. HUMULIN N [Suspect]

REACTIONS (2)
  - HIP ARTHROPLASTY [None]
  - VISUAL IMPAIRMENT [None]
